FAERS Safety Report 16916621 (Version 1)
Quarter: 2019Q4

REPORT INFORMATION
  Report Type: Spontaneous
  Country: US (occurrence: US)
  Receive Date: 20191014
  Receipt Date: 20191014
  Transmission Date: 20200122
  Serious: Yes (Death, Other)
  Sender: FDA-Public Use
  Company Number: US-AMGEN-USASP2019167326

PATIENT
  Sex: Female

DRUGS (6)
  1. FLUDARABINE [Concomitant]
     Active Substance: FLUDARABINE PHOSPHATE
     Dosage: UNK
     Dates: start: 200607
  2. FILGRASTIM [Suspect]
     Active Substance: FILGRASTIM
     Indication: MYELODYSPLASTIC SYNDROME
  3. FILGRASTIM [Suspect]
     Active Substance: FILGRASTIM
     Indication: PANCYTOPENIA
     Dosage: UNK
     Route: 065
     Dates: start: 200607
  4. FILGRASTIM [Suspect]
     Active Substance: FILGRASTIM
     Indication: THROMBOCYTOPENIA
  5. CYTARABINE. [Concomitant]
     Active Substance: CYTARABINE
     Dosage: UNK
     Dates: start: 200607
  6. TACROLIMUS. [Concomitant]
     Active Substance: TACROLIMUS
     Indication: PROPHYLAXIS
     Dosage: UNK
     Dates: start: 2006

REACTIONS (9)
  - Chronic graft versus host disease in skin [Unknown]
  - Chronic graft versus host disease in intestine [Unknown]
  - Cytomegalovirus viraemia [Unknown]
  - Acute myeloid leukaemia [Unknown]
  - Pulmonary mass [Unknown]
  - Death [Fatal]
  - Chronic graft versus host disease in liver [Unknown]
  - Cytogenetic abnormality [Unknown]
  - Product use in unapproved indication [Unknown]

NARRATIVE: CASE EVENT DATE: 200607
